FAERS Safety Report 7799436-0 (Version None)
Quarter: 2011Q4

REPORT INFORMATION
  Report Type: 
  Country: None (occurrence: None)
  Receive Date: 20111004
  Receipt Date: 20110922
  Transmission Date: 20120403
  Serious: Yes (Life-Threatening)
  Sender: FDA-Public Use
  Company Number: 1052307

PATIENT
  Age: 26 Year
  Sex: Male

DRUGS (7)
  1. MIDAZOLAM HCL [Suspect]
     Indication: PRODUCT USED FOR UNKNOWN INDICATION
     Dosage: 5MG,
  2. LACTATED RINGER'S [Suspect]
     Indication: PRODUCT USED FOR UNKNOWN INDICATION
  3. TORADOL [Concomitant]
  4. SODIUM CHLORIDE 0.9% [Suspect]
     Indication: PRODUCT USED FOR UNKNOWN INDICATION
  5. SUFENTANIL CITRATE [Suspect]
     Indication: PRODUCT USED FOR UNKNOWN INDICATION
  6. PROPOFOL [Suspect]
     Indication: PRODUCT USED FOR UNKNOWN INDICATION
  7. ZEMURON [Suspect]

REACTIONS (3)
  - PROTHROMBIN LEVEL ABNORMAL [None]
  - INTERNATIONAL NORMALISED RATIO INCREASED [None]
  - OPERATIVE HAEMORRHAGE [None]
